FAERS Safety Report 8234889-5 (Version None)
Quarter: 2012Q1

REPORT INFORMATION
  Report Type: 
  Country: None (occurrence: None)
  Receive Date: 20120322
  Receipt Date: 20120312
  Transmission Date: 20120608
  Serious: Yes (Other)
  Sender: FDA-Public Use
  Company Number: JP-2012-14118

PATIENT
  Age: 43 Year
  Sex: Female

DRUGS (1)
  1. PLETAL [Suspect]
     Indication: PROPHYLAXIS
     Dosage: 200 MG MILLIGRAM(S), DAILY DOSE, ORAL
     Route: 048

REACTIONS (5)
  - INTRACRANIAL ANEURYSM [None]
  - CEREBRAL INFARCTION [None]
  - CEREBRAL THROMBOSIS [None]
  - DISEASE PROGRESSION [None]
  - VASODILATATION [None]
